FAERS Safety Report 11299515 (Version 1)
Quarter: 2015Q3

REPORT INFORMATION
  Report Type: Spontaneous
  Country: US (occurrence: US)
  Receive Date: 20150722
  Receipt Date: 20150722
  Transmission Date: 20151125
  Serious: No
  Sender: FDA-Public Use
  Company Number: US-ELI_LILLY_AND_COMPANY-US201211006722

PATIENT
  Sex: Female
  Weight: 72.56 kg

DRUGS (1)
  1. HUMATROPE [Suspect]
     Active Substance: SOMATROPIN
     Indication: HYPOTHALAMO-PITUITARY DISORDER
     Dosage: 0.7 MG, QD
     Route: 065
     Dates: start: 2008

REACTIONS (4)
  - Patella fracture [Unknown]
  - Gait disturbance [Unknown]
  - Fall [Unknown]
  - Joint contracture [Unknown]
